FAERS Safety Report 16087787 (Version 1)
Quarter: 2019Q1

REPORT INFORMATION
  Report Type: Report from Study
  Country: FR (occurrence: FR)
  Receive Date: 20190319
  Receipt Date: 20190319
  Transmission Date: 20190418
  Serious: Yes (Other)
  Sender: FDA-Public Use
  Company Number: FR-ACCORD-091967

PATIENT
  Age: 60 Year
  Sex: Male
  Weight: 135 kg

DRUGS (3)
  1. METHOTREXATE. [Suspect]
     Active Substance: METHOTREXATE
     Indication: PSORIASIS
     Dosage: 2.5 MG/WK FROM JAN-2017 TO MAY-2017.
     Route: 058
     Dates: start: 20150604, end: 20161215
  2. DAIVONEX [Concomitant]
     Active Substance: CALCIPOTRIENE
  3. SPECIAFOLDINE [Concomitant]
     Active Substance: FOLIC ACID
     Dates: start: 20130523

REACTIONS (2)
  - Hepatocellular injury [Recovered/Resolved]
  - Transaminases increased [Recovered/Resolved]

NARRATIVE: CASE EVENT DATE: 20161202
